FAERS Safety Report 8514488-8 (Version None)
Quarter: 2012Q3

REPORT INFORMATION
  Report Type: 
  Country: None (occurrence: None)
  Receive Date: 20120717
  Receipt Date: 20120709
  Transmission Date: 20120928
  Serious: Yes (Other)
  Sender: FDA-Public Use
  Company Number: US-PFIZER INC-2012162747

PATIENT
  Sex: Female
  Weight: 99.773 kg

DRUGS (10)
  1. IBUPROFEN [Suspect]
     Indication: EHLERS-DANLOS SYNDROME
     Dosage: UNK
  2. GABAPENTIN [Suspect]
     Dosage: 300 MG, 2X/DAY
     Dates: start: 20120601
  3. NEURONTIN [Suspect]
     Indication: EHLERS-DANLOS SYNDROME
     Dosage: 300 MG,DAILY
     Dates: start: 20120601
  4. GABAPENTIN [Suspect]
     Indication: PAIN
     Dosage: 300 MG, 1X/DAY
     Route: 048
     Dates: start: 20120618
  5. GABAPENTIN [Suspect]
     Dosage: 300 MG, 3X/DAY
     Dates: end: 20120707
  6. CODEINE SUL TAB [Suspect]
     Indication: EHLERS-DANLOS SYNDROME
     Dosage: UNK
  7. NEURONTIN [Suspect]
     Dosage: 300 MG, 2X/DAY
     Dates: start: 20120101
  8. CYCLOBENZAPRINE [Concomitant]
     Indication: MUSCLE SPASTICITY
     Dosage: 1-2MG, 1X/DAY
  9. TRAMADOL HCL [Suspect]
     Indication: EHLERS-DANLOS SYNDROME
     Dosage: UNK
  10. VICODIN [Suspect]
     Indication: EHLERS-DANLOS SYNDROME
     Dosage: UNK

REACTIONS (19)
  - WITHDRAWAL SYNDROME [None]
  - ALOPECIA [None]
  - INSOMNIA [None]
  - PSYCHOMOTOR HYPERACTIVITY [None]
  - FEELING ABNORMAL [None]
  - CLUMSINESS [None]
  - ANGER [None]
  - GASTRIC ULCER [None]
  - ABDOMINAL DISTENSION [None]
  - ERYTHEMA [None]
  - SENSORY LOSS [None]
  - SOMNOLENCE [None]
  - HYPERSENSITIVITY [None]
  - MANIA [None]
  - BALANCE DISORDER [None]
  - DIZZINESS [None]
  - SKIN SWELLING [None]
  - FATIGUE [None]
  - MUSCULOSKELETAL DISCOMFORT [None]
